FAERS Safety Report 25627255 (Version 1)
Quarter: 2025Q3

REPORT INFORMATION
  Report Type: Spontaneous
  Country: US (occurrence: None)
  Receive Date: 20250731
  Receipt Date: 20250731
  Transmission Date: 20251020
  Serious: No
  Sender: FDA-CTU
  Company Number: None

PATIENT
  Age: 37 Year
  Sex: Female
  Weight: 82.5 kg

DRUGS (2)
  1. CARBOPLATIN [Suspect]
     Active Substance: CARBOPLATIN
     Dates: end: 20250624
  2. TAXOL [Suspect]
     Active Substance: PACLITAXEL
     Dates: end: 20250624

REACTIONS (8)
  - Pulmonary embolism [None]
  - Cardiac disorder [None]
  - Lung opacity [None]
  - Pulmonary infarction [None]
  - Embolism [None]
  - Ventilation perfusion mismatch [None]
  - Tricuspid valve incompetence [None]
  - Pulmonary valve incompetence [None]

NARRATIVE: CASE EVENT DATE: 20250708
